FAERS Safety Report 24363861 (Version 2)
Quarter: 2024Q4

REPORT INFORMATION
  Report Type: Spontaneous
  Country: US (occurrence: US)
  Receive Date: 20240925
  Receipt Date: 20241105
  Transmission Date: 20250115
  Serious: No
  Sender: CALLIDITAS THERAPEUTICS AB
  Company Number: US-Calliditas-2024CAL01720

PATIENT
  Age: 43 Year
  Sex: Male
  Weight: 82.1 kg

DRUGS (2)
  1. TARPEYO [Suspect]
     Active Substance: BUDESONIDE
     Indication: IgA nephropathy
     Route: 048
     Dates: start: 20240322, end: 20241024
  2. VALSARTAN [Concomitant]
     Active Substance: VALSARTAN

REACTIONS (5)
  - Arthralgia [Unknown]
  - Prescribed underdose [Unknown]
  - Product dose omission issue [Unknown]
  - Asthenia [Unknown]
  - Acne [Unknown]

NARRATIVE: CASE EVENT DATE: 20240705
